FAERS Safety Report 9052041 (Version 1)
Quarter: 2013Q1

REPORT INFORMATION
  Report Type: Spontaneous
  Country: US (occurrence: US)
  Receive Date: 20130207
  Receipt Date: 20130207
  Transmission Date: 20140127
  Serious: Yes (Other)
  Sender: FDA-Public Use
  Company Number: US-JNJFOC-20130114888

PATIENT
  Age: 28 Year
  Sex: Female

DRUGS (6)
  1. EXTRA STRENGTH TYLENOL PM [Suspect]
     Indication: INSOMNIA
     Route: 065
     Dates: start: 201301, end: 201301
  2. VIIBRYD [Suspect]
     Indication: DEPRESSION
     Route: 065
     Dates: start: 2012, end: 2012
  3. VIIBRYD [Suspect]
     Indication: DEPRESSION
     Route: 065
  4. VIIBRYD [Suspect]
     Indication: DEPRESSION
     Route: 065
     Dates: start: 2012
  5. LAMICTAL [Concomitant]
     Route: 065
  6. SEROQUEL [Concomitant]
     Route: 065

REACTIONS (6)
  - Cognitive disorder [Recovering/Resolving]
  - Dysarthria [Recovering/Resolving]
  - Muscle twitching [Recovering/Resolving]
  - Night sweats [Recovering/Resolving]
  - Somnolence [Recovering/Resolving]
  - Depression [Unknown]
